FAERS Safety Report 25021869 (Version 1)
Quarter: 2025Q1

REPORT INFORMATION
  Report Type: Other
  Country: FR (occurrence: FR)
  Receive Date: 20250228
  Receipt Date: 20250228
  Transmission Date: 20250408
  Serious: Yes (Hospitalization)
  Sender: ZYDUS PHARM
  Company Number: None

PATIENT

DRUGS (2)
  1. BISOPROLOL [Suspect]
     Active Substance: BISOPROLOL
     Indication: Marfan^s syndrome
     Route: 064
     Dates: end: 20230303
  2. FLUTICASONE FUROATE\VILANTEROL TRIFENATATE [Suspect]
     Active Substance: FLUTICASONE FUROATE\VILANTEROL TRIFENATATE
     Indication: Asthma
     Route: 064
     Dates: end: 20230202

REACTIONS (7)
  - Foetal heart rate disorder [Recovered/Resolved]
  - Hypoglycaemia neonatal [Recovered/Resolved]
  - Low birth weight baby [Unknown]
  - Foetal growth restriction [Recovered/Resolved]
  - Term birth [Recovered/Resolved]
  - Normal newborn [Recovered/Resolved]
  - Foetal exposure during pregnancy [Recovered/Resolved]

NARRATIVE: CASE EVENT DATE: 20230303
